FAERS Safety Report 16517663 (Version 1)
Quarter: 2019Q3

REPORT INFORMATION
  Report Type: Spontaneous
  Country: IT (occurrence: IT)
  Receive Date: 20190702
  Receipt Date: 20190702
  Transmission Date: 20191004
  Serious: Yes (Other)
  Sender: FDA-Public Use
  Company Number: IT-MYLANLABS-2019M1060683

PATIENT
  Age: 87 Year
  Sex: Male

DRUGS (6)
  1. HYDROCHLOROTHIAZIDE/LOSARTAN [Suspect]
     Active Substance: HYDROCHLOROTHIAZIDE\LOSARTAN
     Indication: HYPERTENSION
     Dosage: 125 MILLIGRAM, QD
     Route: 048
     Dates: start: 20180101, end: 20181209
  2. FUROSEMIDE. [Suspect]
     Active Substance: FUROSEMIDE
     Indication: HYPERTENSION
     Dosage: 25 MILLIGRAM, QD
     Route: 048
     Dates: start: 20180101, end: 20181209
  3. ALLOPURINOL. [Concomitant]
     Active Substance: ALLOPURINOL
     Dosage: UNK
  4. MEDROL [Concomitant]
     Active Substance: METHYLPREDNISOLONE
  5. SEQUACOR [Concomitant]
     Active Substance: BISOPROLOL
     Dosage: UNK
  6. LACIREX [Concomitant]
     Active Substance: LACIDIPINE
     Dosage: UNK

REACTIONS (3)
  - Orthostatic hypotension [Recovering/Resolving]
  - Syncope [Recovering/Resolving]
  - Hypokalaemia [Recovering/Resolving]

NARRATIVE: CASE EVENT DATE: 20181209
